FAERS Safety Report 12452729 (Version 1)
Quarter: 2016Q2

REPORT INFORMATION
  Report Type: Spontaneous
  Country: US (occurrence: US)
  Receive Date: 20160609
  Receipt Date: 20160609
  Transmission Date: 20160815
  Serious: No
  Sender: FDA-Public Use
  Company Number: US-FRESENIUS KABI-FK201603431

PATIENT
  Sex: Female

DRUGS (1)
  1. MORPHINE SULFATE INJECTION (MANUFACTURER UNKNOWN) [Suspect]
     Active Substance: MORPHINE SULFATE
     Indication: TENDONITIS
     Route: 065
     Dates: start: 20160604, end: 20160604

REACTIONS (7)
  - Cardiac discomfort [Recovered/Resolved]
  - Pruritus [Recovered/Resolved]
  - Dysuria [Recovered/Resolved]
  - Dyspnoea [Recovered/Resolved]
  - Somnolence [Recovered/Resolved]
  - Hypotension [Recovered/Resolved]
  - Vomiting [Recovered/Resolved]

NARRATIVE: CASE EVENT DATE: 20160604
